FAERS Safety Report 23891600 (Version 3)
Quarter: 2024Q3

REPORT INFORMATION
  Report Type: Report from Study
  Country: US (occurrence: US)
  Receive Date: 20240524
  Receipt Date: 20240704
  Transmission Date: 20241016
  Serious: Yes (Other)
  Sender: ROCHE
  Company Number: US-ROCHE-3531499

PATIENT
  Age: 83 Year
  Sex: Female

DRUGS (3)
  1. ESBRIET [Suspect]
     Active Substance: PIRFENIDONE
     Indication: Idiopathic pulmonary fibrosis
     Dosage: TAKE 2 TABLET(S) BY MOUTH 3 TIMES A DAY
     Route: 048
  2. ESBRIET [Suspect]
     Active Substance: PIRFENIDONE
     Indication: Interstitial lung disease
  3. ESBRIET [Suspect]
     Active Substance: PIRFENIDONE
     Indication: Pneumonia

REACTIONS (10)
  - Gastrointestinal disorder [Unknown]
  - Abdominal discomfort [Unknown]
  - Nausea [Unknown]
  - Diarrhoea [Unknown]
  - Chills [Unknown]
  - Gastrointestinal disorder [Unknown]
  - Drug intolerance [Unknown]
  - Upper-airway cough syndrome [Unknown]
  - Scar [Unknown]
  - Small intestinal obstruction [Unknown]
